FAERS Safety Report 14775952 (Version 1)
Quarter: 2018Q2

REPORT INFORMATION
  Report Type: Report from Study
  Country: US (occurrence: US)
  Receive Date: 20180418
  Receipt Date: 20180418
  Transmission Date: 20180711
  Serious: Yes (Other)
  Sender: FDA-Public Use
  Company Number: US-ASTRAZENECA-2016SE67488

PATIENT
  Age: 775 Month
  Sex: Female
  Weight: 77.1 kg

DRUGS (40)
  1. TAGRISSO [Suspect]
     Active Substance: OSIMERTINIB
     Indication: NON-SMALL CELL LUNG CANCER STAGE IV
     Route: 048
     Dates: start: 20160527
  2. CLINDAMYCIN-BENZOYL PEROXIDE [Concomitant]
  3. BIOTENE MOUTHWASH [Concomitant]
     Active Substance: CETYLPYRIDINIUM CHLORIDE
  4. ALEVE [Concomitant]
     Active Substance: NAPROXEN SODIUM
  5. VITAMIN B6 [Concomitant]
     Active Substance: PYRIDOXINE HYDROCHLORIDE
  6. ZANTAC [Concomitant]
     Active Substance: RANITIDINE HYDROCHLORIDE
  7. IRON [Concomitant]
     Active Substance: IRON
  8. MELATONIN [Concomitant]
     Active Substance: MELATONIN
  9. ACIDOPHILUS [Concomitant]
     Active Substance: LACTOBACILLUS ACIDOPHILUS
  10. ACETYLCYSTEINE. [Concomitant]
     Active Substance: ACETYLCYSTEINE
  11. LISINOPRIL. [Suspect]
     Active Substance: LISINOPRIL
     Route: 048
  12. TAGRISSO [Suspect]
     Active Substance: OSIMERTINIB
     Indication: LUNG NEOPLASM MALIGNANT
     Route: 048
     Dates: start: 20160527
  13. VITAMIN D3 [Concomitant]
     Active Substance: CHOLECALCIFEROL
  14. LOPERAMIDE [Concomitant]
     Active Substance: LOPERAMIDE
  15. CARNITINE [Concomitant]
     Active Substance: CARNITINE
  16. ERBITUX [Concomitant]
     Active Substance: CETUXIMAB
  17. SELENIUM [Concomitant]
     Active Substance: SELENIUM
  18. IRON [Concomitant]
     Active Substance: IRON
  19. LEXAPRO [Concomitant]
     Active Substance: ESCITALOPRAM OXALATE
  20. MOTRIN [Concomitant]
     Active Substance: IBUPROFEN
  21. TROSPIUM CHLORIDE. [Concomitant]
     Active Substance: TROSPIUM CHLORIDE
  22. LICORICE ROOT [Concomitant]
     Active Substance: LICORICE
  23. COENZYME Q10 [Concomitant]
     Active Substance: UBIDECARENONE
  24. ZINC. [Concomitant]
     Active Substance: ZINC
  25. ACETYLCARNITINE [Concomitant]
     Active Substance: ACETYLCARNITINE
  26. ALEVE [Concomitant]
     Active Substance: NAPROXEN SODIUM
  27. LOMOTIL [Concomitant]
     Active Substance: ATROPINE SULFATE\DIPHENOXYLATE HYDROCHLORIDE
  28. CARAFATE [Concomitant]
     Active Substance: SUCRALFATE
  29. LISINOPRIL. [Suspect]
     Active Substance: LISINOPRIL
     Route: 048
     Dates: start: 2010
  30. PRILOSEC OTC [Suspect]
     Active Substance: OMEPRAZOLE MAGNESIUM
     Indication: GASTROOESOPHAGEAL REFLUX DISEASE
     Dosage: PRILOSEC OTC 20MG EVERY OTHER DAY FOR 1 WEEK ABOUT 2 WEEKS
     Route: 048
     Dates: start: 201710
  31. BIOTIN [Concomitant]
     Active Substance: BIOTIN
  32. CURCUMIN [Concomitant]
     Active Substance: CURCUMIN
  33. VITAMIN B12 [Concomitant]
     Active Substance: CYANOCOBALAMIN
  34. FLAXSEED [Concomitant]
     Active Substance: FLAX SEED
  35. TAGRISSO [Suspect]
     Active Substance: OSIMERTINIB
     Indication: LUNG CARCINOMA CELL TYPE UNSPECIFIED STAGE 0
     Route: 048
     Dates: start: 20160527
  36. PRILOSEC OTC [Suspect]
     Active Substance: OMEPRAZOLE MAGNESIUM
     Indication: GASTROOESOPHAGEAL REFLUX DISEASE
     Dosage: PRILOSEC OTC 20MG EVERY OTHER DAY FOR 1 WEEK ABOUT 2 WEEKS
     Route: 048
     Dates: start: 201710
  37. ACETYLCARNITINE HYDROCHLORIDE [Concomitant]
     Active Substance: ACETYLCARNITINE HYDROCHLORIDE
  38. OMEGA 3 [Concomitant]
     Active Substance: OMEGA-3 FATTY ACIDS
  39. GLUCOSAMINE CHONDROITIN [Concomitant]
     Active Substance: CHONDROITIN SULFATE (BOVINE)\GLUCOSAMINE HYDROCHLORIDE
  40. MAGNESIUM [Concomitant]
     Active Substance: MAGNESIUM

REACTIONS (40)
  - Bone pain [Unknown]
  - Onychoclasis [Unknown]
  - Nail growth abnormal [Unknown]
  - Pneumonia [Unknown]
  - Dyspnoea [Unknown]
  - Acquired oesophageal web [Unknown]
  - Nail discolouration [Unknown]
  - Anaemia [Unknown]
  - Arthritis [Unknown]
  - Autoimmune thyroiditis [Unknown]
  - Osteoporosis [Unknown]
  - Vaginal prolapse [Unknown]
  - Back pain [Unknown]
  - Hiatus hernia [Unknown]
  - Cardiac disorder [Unknown]
  - Diarrhoea [Unknown]
  - Pharyngeal erythema [Unknown]
  - Adverse event [Unknown]
  - Hypertension [Unknown]
  - Sleep apnoea syndrome [Unknown]
  - Ulcer [Unknown]
  - Visual impairment [Unknown]
  - Dry mouth [Unknown]
  - Metastases to bone [Unknown]
  - Osteopenia [Unknown]
  - Blood pressure increased [Unknown]
  - Nail bed disorder [Unknown]
  - Dizziness [Unknown]
  - Ear pain [Unknown]
  - Red blood cell count decreased [Unknown]
  - Neuropathy peripheral [Unknown]
  - Gastrooesophageal reflux disease [Recovered/Resolved]
  - Fatigue [Unknown]
  - Memory impairment [Unknown]
  - Oropharyngeal pain [Unknown]
  - Non-small cell lung cancer metastatic [Unknown]
  - Metastases to spine [Unknown]
  - Nocturia [Unknown]
  - Nail disorder [Unknown]
  - Somnolence [Unknown]

NARRATIVE: CASE EVENT DATE: 201707
